FAERS Safety Report 20041720 (Version 2)
Quarter: 2021Q4

REPORT INFORMATION
  Report Type: Spontaneous
  Country: NL (occurrence: NL)
  Receive Date: 20211108
  Receipt Date: 20211111
  Transmission Date: 20220303
  Serious: Yes (Death)
  Sender: FDA-Public Use
  Company Number: NL-AstraZeneca-2021A787577

PATIENT

DRUGS (1)
  1. ZOLADEX [Suspect]
     Active Substance: GOSERELIN ACETATE
     Indication: Neoplasm malignant
     Dosage: 10.8 MG, EVERY THREE MONTHS
     Route: 058
     Dates: start: 20200108

REACTIONS (2)
  - Death [Fatal]
  - Off label use [Unknown]

NARRATIVE: CASE EVENT DATE: 20211014
